FAERS Safety Report 17753780 (Version 2)
Quarter: 2020Q2

REPORT INFORMATION
  Report Type: Spontaneous
  Country: BR (occurrence: BR)
  Receive Date: 20200506
  Receipt Date: 20200522
  Transmission Date: 20200714
  Serious: Yes (Other)
  Sender: FDA-Public Use
  Company Number: BR-009507513-2004BRA009188

PATIENT
  Age: 20 Year
  Sex: Female
  Weight: 80 kg

DRUGS (4)
  1. NUVARING [Suspect]
     Active Substance: ETHINYL ESTRADIOL\ETONOGESTREL
     Dosage: 1 RING, QM
     Route: 067
     Dates: start: 20200411, end: 20200425
  2. NUVARING [Suspect]
     Active Substance: ETHINYL ESTRADIOL\ETONOGESTREL
     Dosage: 1 RING, QM
     Route: 067
     Dates: start: 20200425
  3. NUVARING [Suspect]
     Active Substance: ETHINYL ESTRADIOL\ETONOGESTREL
     Indication: POLYCYSTIC OVARIES
     Dosage: 1 RING, QM, STARTED USING IT WHEN SHE WAS 20 YEARS OLD
     Route: 067
     Dates: start: 2009, end: 2016
  4. NUVARING [Suspect]
     Active Substance: ETHINYL ESTRADIOL\ETONOGESTREL
     Dosage: 1 RING, QM, RESUMED THERAPY WHEN SHE WAS 29 YEARS OLD
     Route: 067
     Dates: start: 2018

REACTIONS (6)
  - Medical device site discomfort [Unknown]
  - Product use in unapproved indication [Unknown]
  - Diabetes mellitus [Unknown]
  - Device breakage [Unknown]
  - Drug effective for unapproved indication [Unknown]
  - Abnormal withdrawal bleeding [Unknown]

NARRATIVE: CASE EVENT DATE: 2009
